FAERS Safety Report 5695539-5 (Version None)
Quarter: 2008Q2

REPORT INFORMATION
  Report Type: 
  Country: None (occurrence: None)
  Receive Date: 20080407
  Receipt Date: 20080404
  Transmission Date: 20081010
  Serious: Yes (Other)
  Sender: FDA-Public Use
  Company Number: US-BRISTOL-MYERS SQUIBB COMPANY-14139463

PATIENT

DRUGS (1)
  1. TAXOL [Suspect]

REACTIONS (1)
  - METABOLIC ACIDOSIS [None]
